FAERS Safety Report 23961308 (Version 1)
Quarter: 2024Q2

REPORT INFORMATION
  Report Type: Spontaneous
  Country: US (occurrence: None)
  Receive Date: 20240610
  Receipt Date: 20240610
  Transmission Date: 20240716
  Serious: Yes (Other)
  Sender: FDA-Public Use
  Company Number: None

PATIENT
  Age: 66 Year
  Sex: Male

DRUGS (1)
  1. LENALIDOMIDE [Suspect]
     Active Substance: LENALIDOMIDE
     Indication: Plasma cell myeloma
     Dosage: FREQUENCY : DAILY;?
     Route: 048
     Dates: start: 20240130, end: 20240507

REACTIONS (6)
  - Rash [None]
  - Erythema [None]
  - Pruritus [None]
  - Skin weeping [None]
  - Deep vein thrombosis [None]
  - Therapy cessation [None]

NARRATIVE: CASE EVENT DATE: 20240507
